FAERS Safety Report 6369301-4 (Version None)
Quarter: 2009Q3

REPORT INFORMATION
  Report Type: 
  Country: None (occurrence: None)
  Receive Date: 20090916
  Receipt Date: 20090904
  Transmission Date: 20100115
  Serious: Yes (Other)
  Sender: FDA-Public Use
  Company Number: DE-1170435

PATIENT
  Age: 24 Year
  Sex: Male

DRUGS (1)
  1. FLUORESCEIN SODIUM (FLUORESCEIN SODIUM) 10 % INJECTION LOT# 160841F SO [Suspect]
     Dosage: 5 ML
     Route: 040
     Dates: start: 20090717

REACTIONS (11)
  - COLD SWEAT [None]
  - EYELID OEDEMA [None]
  - FALL [None]
  - HEART RATE INCREASED [None]
  - HYPERSENSITIVITY [None]
  - LOSS OF CONSCIOUSNESS [None]
  - NAUSEA [None]
  - PARAESTHESIA [None]
  - THROAT TIGHTNESS [None]
  - URINARY INCONTINENCE [None]
  - URTICARIA [None]
